FAERS Safety Report 25911643 (Version 2)
Quarter: 2025Q4

REPORT INFORMATION
  Report Type: Report from Study
  Country: US (occurrence: US)
  Receive Date: 20251013
  Receipt Date: 20251114
  Transmission Date: 20260119
  Serious: Yes (Other)
  Sender: ABBVIE
  Company Number: US-ABBVIE-6493287

PATIENT
  Age: 70 Year
  Sex: Male
  Weight: 101.15 kg

DRUGS (8)
  1. CREON [Suspect]
     Active Substance: PANCRELIPASE AMYLASE\PANCRELIPASE LIPASE\PANCRELIPASE PROTEASE
     Indication: Pancreatic failure
     Dosage: FORM STRENGTH: 36000 UNIT, 3 CAPSULES PER MEAL, 2 FOR SNACK
     Route: 048
     Dates: start: 2021, end: 2023
  2. CREON [Suspect]
     Active Substance: PANCRELIPASE AMYLASE\PANCRELIPASE LIPASE\PANCRELIPASE PROTEASE
     Indication: Pancreatic failure
     Dosage: FORM STRENGTH: 36000 UNIT, FREQUENCY TEXT: 1 CAPSULES PER MEAL, 1 FOR SNACK
     Route: 048
     Dates: start: 202509
  3. DULOXETINE [Concomitant]
     Active Substance: DULOXETINE
     Indication: Fibromyalgia
  4. LISINOPRIL [Concomitant]
     Active Substance: LISINOPRIL
     Indication: Hypertension
  5. ROSUVASTATIN [Concomitant]
     Active Substance: ROSUVASTATIN
     Indication: Hypertension
  6. ACTOS [Concomitant]
     Active Substance: PIOGLITAZONE HYDROCHLORIDE
     Indication: Diabetes mellitus
  7. SYNTHROID [Concomitant]
     Active Substance: LEVOTHYROXINE SODIUM
     Indication: Autoimmune thyroiditis
  8. PANTOPRAZOLE [Concomitant]
     Active Substance: PANTOPRAZOLE
     Indication: Metabolic surgery

REACTIONS (3)
  - Autoimmune thyroiditis [Not Recovered/Not Resolved]
  - Pancreatic atrophy [Not Recovered/Not Resolved]
  - Investigation abnormal [Not Recovered/Not Resolved]

NARRATIVE: CASE EVENT DATE: 20230101
